FAERS Safety Report 15807632 (Version 1)
Quarter: 2019Q1

REPORT INFORMATION
  Report Type: Spontaneous
  Country: US (occurrence: US)
  Receive Date: 20190110
  Receipt Date: 20190110
  Transmission Date: 20190417
  Serious: Yes (Death, Hospitalization)
  Sender: FDA-Public Use
  Company Number: US-MYLANLABS-2019M1001299

PATIENT
  Age: 89 Year
  Sex: Male

DRUGS (1)
  1. METHOTREXATE. [Suspect]
     Active Substance: METHOTREXATE
     Indication: PEMPHIGUS
     Dosage: WEEKLY DOSES
     Route: 065

REACTIONS (5)
  - Respiratory failure [Fatal]
  - Hypoxia [Fatal]
  - Epstein-Barr virus associated lymphoma [Fatal]
  - Mental status changes [Unknown]
  - Cellulitis staphylococcal [Unknown]
